FAERS Safety Report 20893913 (Version 1)
Quarter: 2022Q2

REPORT INFORMATION
  Report Type: Spontaneous
  Country: CN (occurrence: CN)
  Receive Date: 20220531
  Receipt Date: 20220531
  Transmission Date: 20220721
  Serious: Yes (Other)
  Sender: FDA-Public Use
  Company Number: CN-SA-2022SA194086

PATIENT
  Age: 66 Year
  Sex: Female

DRUGS (2)
  1. INSULIN GLARGINE [Suspect]
     Active Substance: INSULIN GLARGINE
     Indication: Diabetes mellitus
     Dosage: RECOMBINANT
     Dates: start: 201909, end: 2019
  2. INSULIN HUMAN [Suspect]
     Active Substance: INSULIN HUMAN
     Indication: Diabetes mellitus
     Dosage: RECOMBINANT
     Dates: start: 201909, end: 2019

REACTIONS (1)
  - Insulin autoimmune syndrome [Recovered/Resolved]

NARRATIVE: CASE EVENT DATE: 20190101
